FAERS Safety Report 14781345 (Version 1)
Quarter: 2018Q2

REPORT INFORMATION
  Report Type: Spontaneous
  Country: DE (occurrence: DE)
  Receive Date: 20180419
  Receipt Date: 20180419
  Transmission Date: 20180711
  Serious: Yes (Disabling, Other)
  Sender: FDA-Public Use
  Company Number: DE-TEVA-2018-DE-883626

PATIENT
  Age: 54 Year
  Sex: Female

DRUGS (1)
  1. OFLOXACIN. [Suspect]
     Active Substance: OFLOXACIN
     Indication: ABDOMINAL ABSCESS
     Route: 048
     Dates: start: 201306

REACTIONS (11)
  - Tendon rupture [Not Recovered/Not Resolved]
  - Pain [Not Recovered/Not Resolved]
  - Aortic aneurysm [Unknown]
  - Memory impairment [Unknown]
  - Musculoskeletal stiffness [Not Recovered/Not Resolved]
  - Depression [Unknown]
  - Impaired work ability [Not Recovered/Not Resolved]
  - Tendon rupture [Recovered/Resolved]
  - Suicidal ideation [Unknown]
  - Swelling [Not Recovered/Not Resolved]
  - Gait inability [Not Recovered/Not Resolved]

NARRATIVE: CASE EVENT DATE: 201306
